FAERS Safety Report 23011989 (Version 5)
Quarter: 2024Q4

REPORT INFORMATION
  Report Type: Report from Study
  Country: US (occurrence: US)
  Receive Date: 20230929
  Receipt Date: 20241011
  Transmission Date: 20250114
  Serious: Yes (Other)
  Sender: ABBVIE
  Company Number: US-ABBVIE-5428259

PATIENT
  Age: 83 Year
  Sex: Female

DRUGS (8)
  1. VENCLEXTA [Suspect]
     Active Substance: VENETOCLAX
     Indication: Chronic lymphocytic leukaemia
     Dosage: FORM STRENGTH WAS 100 MILLIGRAM. WEEK 2?TAKE 4 TABLET(S) BY MOUTH (400MG) EVERY DAY WITH FOOD + W...
     Route: 048
  2. VENCLEXTA [Suspect]
     Active Substance: VENETOCLAX
     Indication: Chronic lymphocytic leukaemia
     Dosage: WEEK 3
     Route: 048
  3. VENCLEXTA [Suspect]
     Active Substance: VENETOCLAX
     Indication: Chronic lymphocytic leukaemia
     Dosage: WEEK 4
     Route: 048
  4. VENCLEXTA [Suspect]
     Active Substance: VENETOCLAX
     Indication: Chronic lymphocytic leukaemia
     Dosage: FORM STRENGTH: 100 MILLIGRAM?WEEK 1?TAKE WHOLE WITH WATER AND A MEAL, AT APPROXIMATELY
     Route: 048
     Dates: start: 2022
  5. VENCLEXTA [Suspect]
     Active Substance: VENETOCLAX
     Indication: Chronic lymphocytic leukaemia
     Dosage: FORM STRENGTH: 100 MILLIGRAM?DOSE MODIFIED NOS
     Route: 048
  6. ALLOPURINOL [Concomitant]
     Active Substance: ALLOPURINOL
     Indication: Product used for unknown indication
  7. ACALABRUTINIB [Concomitant]
     Active Substance: ACALABRUTINIB
     Indication: Product used for unknown indication
     Dates: start: 2021
  8. LEVOTHYROXINE [Concomitant]
     Active Substance: LEVOTHYROXINE
     Indication: Thyroid disorder
     Route: 048
     Dates: start: 2004

REACTIONS (7)
  - Deafness [Recovering/Resolving]
  - Tinnitus [Unknown]
  - COVID-19 [Recovered/Resolved]
  - Middle ear effusion [Recovered/Resolved]
  - Atrial fibrillation [Unknown]
  - Cataract [Unknown]
  - Visual impairment [Unknown]

NARRATIVE: CASE EVENT DATE: 20221201
